FAERS Safety Report 18925954 (Version 12)
Quarter: 2023Q1

REPORT INFORMATION
  Report Type: Spontaneous
  Country: CA (occurrence: CA)
  Receive Date: 20210222
  Receipt Date: 20230131
  Transmission Date: 20230418
  Serious: Yes (Other)
  Sender: FDA-Public Use
  Company Number: CA-CELLTRION INC.-2020CA035019

PATIENT

DRUGS (21)
  1. INFLECTRA [Suspect]
     Active Substance: INFLIXIMAB-DYYB
     Indication: Crohn^s disease
     Dosage: 400 MG  AT 0, 2, 6, THEN EVERY 8 WEEKS
     Route: 042
     Dates: start: 20200715
  2. INFLECTRA [Suspect]
     Active Substance: INFLIXIMAB-DYYB
     Dosage: 400 MG  AT 0, 2, 6, THEN EVERY 8 WEEKS
     Route: 042
     Dates: start: 20200727
  3. INFLECTRA [Suspect]
     Active Substance: INFLIXIMAB-DYYB
     Dosage: 400 MG  AT 0, 2, 6, THEN EVERY 8 WEEKS
     Route: 042
     Dates: start: 20200828
  4. INFLECTRA [Suspect]
     Active Substance: INFLIXIMAB-DYYB
     Dosage: 400 MG  AT 0, 2, 6, THEN EVERY 8 WEEKS
     Route: 042
     Dates: start: 20201023
  5. INFLECTRA [Suspect]
     Active Substance: INFLIXIMAB-DYYB
     Dosage: 400 MG  AT 0, 2, 6, THEN EVERY 8 WEEKS
     Route: 042
     Dates: start: 20201218
  6. INFLECTRA [Suspect]
     Active Substance: INFLIXIMAB-DYYB
     Dosage: 400 MG  AT 0, 2, 6, THEN EVERY 8 WEEKS
     Route: 042
     Dates: start: 20210212
  7. INFLECTRA [Suspect]
     Active Substance: INFLIXIMAB-DYYB
     Dosage: 400 MG  AT 0, 2, 6, THEN EVERY 8 WEEKS
     Route: 042
     Dates: start: 20210410
  8. INFLECTRA [Suspect]
     Active Substance: INFLIXIMAB-DYYB
     Dosage: 400 MG  AT 0, 2, 6, THEN EVERY 8 WEEKS
     Route: 042
     Dates: start: 20210607
  9. INFLECTRA [Suspect]
     Active Substance: INFLIXIMAB-DYYB
     Dosage: 400 MG  AT 0, 2, 6, THEN EVERY 8 WEEKS
     Route: 042
     Dates: start: 20210803
  10. INFLECTRA [Suspect]
     Active Substance: INFLIXIMAB-DYYB
     Dosage: 400 MG  AT 0, 2, 6, THEN EVERY 8 WEEKS
     Route: 042
     Dates: start: 20211021
  11. INFLECTRA [Suspect]
     Active Substance: INFLIXIMAB-DYYB
     Dosage: 400 MG  AT 0, 2, 6, THEN EVERY 8 WEEKS
     Route: 042
     Dates: start: 20211217
  12. INFLECTRA [Suspect]
     Active Substance: INFLIXIMAB-DYYB
     Dosage: 400 MG  AT 0, 2, 6, THEN EVERY 8 WEEKS
     Route: 042
     Dates: start: 20220211
  13. INFLECTRA [Suspect]
     Active Substance: INFLIXIMAB-DYYB
     Dosage: 400 MG  AT 0, 2, 6, THEN EVERY 8 WEEKS
     Route: 042
     Dates: start: 20220408
  14. INFLECTRA [Suspect]
     Active Substance: INFLIXIMAB-DYYB
     Dosage: 400 MG  AT 0, 2, 6, THEN EVERY 8 WEEKS
     Route: 042
     Dates: start: 20220729
  15. INFLECTRA [Suspect]
     Active Substance: INFLIXIMAB-DYYB
     Dosage: 400 MG  AT 0, 2, 6, THEN EVERY 8 WEEKS
     Route: 042
     Dates: start: 20220923
  16. INFLECTRA [Suspect]
     Active Substance: INFLIXIMAB-DYYB
     Dosage: 400 MG Q 0, 2, 6 WEEKS, THEN EVERY 8 WEEKS
     Route: 042
     Dates: start: 20221123
  17. INFLECTRA [Suspect]
     Active Substance: INFLIXIMAB-DYYB
     Dosage: 400 MG Q 0, 2, 6 WEEKS, THEN EVERY 8 WEEKS
     Route: 042
     Dates: start: 20230120
  18. ACETAMINOPHEN [Concomitant]
     Active Substance: ACETAMINOPHEN
     Indication: Premedication
     Dosage: 650 MG PO
     Route: 048
     Dates: start: 20220923, end: 20220923
  19. ENTOCORT [Concomitant]
     Active Substance: BUDESONIDE
     Dosage: UNK
  20. METHOTREXATE [Concomitant]
     Active Substance: METHOTREXATE
     Dosage: UNK, WEEKLY
     Route: 048
  21. SOLU-CORTEF [Concomitant]
     Active Substance: HYDROCORTISONE SODIUM SUCCINATE
     Indication: Premedication
     Dosage: 200 MG PIV
     Route: 042
     Dates: start: 20220923, end: 20220923

REACTIONS (11)
  - Gastrointestinal disorder [Unknown]
  - Off label use [Unknown]
  - Intentional product use issue [Unknown]
  - Inappropriate schedule of product administration [Unknown]
  - Suspected COVID-19 [Unknown]
  - Arthralgia [Unknown]
  - Weight increased [Unknown]
  - Hypotension [Not Recovered/Not Resolved]
  - Condition aggravated [Recovering/Resolving]
  - Poor venous access [Unknown]
  - Dizziness [Unknown]

NARRATIVE: CASE EVENT DATE: 20210925
